FAERS Safety Report 9580302 (Version 1)
Quarter: 2013Q4

REPORT INFORMATION
  Report Type: Spontaneous
  Country: US (occurrence: None)
  Receive Date: 20131001
  Receipt Date: 20131001
  Transmission Date: 20140711
  Serious: No
  Sender: FDA-Public Use
  Company Number: None

PATIENT
  Age: 44 None
  Sex: Male
  Weight: 97.4 kg

DRUGS (1)
  1. GEMFIBROZIL [Suspect]
     Route: 048
     Dates: start: 20130502, end: 20130515

REACTIONS (1)
  - Fatigue [None]
